FAERS Safety Report 8494960-X (Version None)
Quarter: 2012Q2

REPORT INFORMATION
  Report Type: 
  Country: None (occurrence: None)
  Receive Date: 20120405
  Receipt Date: 20100512
  Transmission Date: 20120825
  Serious: Yes (Other)
  Sender: FDA-Public Use
  Company Number: PHHY2010US26188

PATIENT
  Sex: Female

DRUGS (1)
  1. RECLAST [Suspect]
     Indication: OSTEITIS DEFORMANS
     Dosage: INTRAVENOUS
     Route: 042

REACTIONS (2)
  - DRUG ADMINISTRATION ERROR [None]
  - HYPERTENSION [None]
